FAERS Safety Report 18630307 (Version 1)
Quarter: 2020Q4

REPORT INFORMATION
  Report Type: Other
  Country: CA (occurrence: CA)
  Receive Date: 20201217
  Receipt Date: 20201217
  Transmission Date: 20210114
  Serious: Yes (Other)
  Sender: FDA-Public Use
  Company Number: CA-GE HEALTHCARE LIFE SCIENCES-2020CSU006484

PATIENT

DRUGS (2)
  1. OMNIPAQUE [Suspect]
     Active Substance: IOHEXOL
     Indication: PRODUCT USED FOR UNKNOWN INDICATION
  2. OMNIPAQUE [Suspect]
     Active Substance: IOHEXOL
     Indication: SCAN WITH CONTRAST
     Dosage: 86 IU, SINGLE
     Route: 040

REACTIONS (5)
  - Chest pain [Unknown]
  - Urticaria [Unknown]
  - Burning sensation [Unknown]
  - Dyspnoea [Unknown]
  - Sensory disturbance [Unknown]
